FAERS Safety Report 14275144 (Version 5)
Quarter: 2018Q1

REPORT INFORMATION
  Report Type: Spontaneous
  Country: US (occurrence: US)
  Receive Date: 20171212
  Receipt Date: 20180116
  Transmission Date: 20180508
  Serious: Yes (Hospitalization, Other)
  Sender: FDA-Public Use
  Company Number: US-GLAXOSMITHKLINE-US2017GSK189743

PATIENT
  Age: 67 Year
  Sex: Female

DRUGS (4)
  1. FLOLAN [Suspect]
     Active Substance: EPOPROSTENOL SODIUM
     Indication: PULMONARY HYPERTENSION
     Dosage: UNK
     Dates: start: 20170927
  2. FLOLAN [Suspect]
     Active Substance: EPOPROSTENOL SODIUM
     Indication: PULMONARY HYPERTENSION
     Dosage: 10 NG/KG/MIN, CO
     Route: 042
     Dates: start: 20170927
  3. FLOLAN [Suspect]
     Active Substance: EPOPROSTENOL SODIUM
     Indication: PULMONARY HYPERTENSION
     Dosage: 11 NG/KG/MIN, CO
     Route: 042
     Dates: start: 20170927
  4. FLOLAN [Suspect]
     Active Substance: EPOPROSTENOL SODIUM
     Indication: PULMONARY HYPERTENSION

REACTIONS (9)
  - Paraesthesia oral [Unknown]
  - Dyspnoea [Unknown]
  - Oedema peripheral [Unknown]
  - Hospitalisation [Recovered/Resolved]
  - Alopecia [Unknown]
  - Device breakage [Unknown]
  - Dyspnoea exertional [Unknown]
  - Pericardial effusion [Unknown]
  - Irritable bowel syndrome [Unknown]

NARRATIVE: CASE EVENT DATE: 20171215
